FAERS Safety Report 7786413-9 (Version None)
Quarter: 2011Q3

REPORT INFORMATION
  Report Type: 
  Country: None (occurrence: None)
  Receive Date: 20110929
  Receipt Date: 20110921
  Transmission Date: 20111222
  Serious: No
  Sender: FDA-Public Use
  Company Number: US-MUTUAL PHARMACEUTICAL COMPANY, INC.-CLCY20110133

PATIENT
  Sex: Female
  Weight: 89.438 kg

DRUGS (9)
  1. ULORIC [Concomitant]
     Indication: GOUT
     Route: 048
  2. NORVASC [Concomitant]
     Indication: HYPERTENSION
     Route: 048
  3. HYDROCHLOROTHIAZIDE [Concomitant]
     Indication: HYPERTENSION
     Route: 048
  4. PLAVIX [Concomitant]
     Indication: CARDIOVASCULAR EVENT PROPHYLAXIS
     Route: 048
  5. LORAZEPAM [Concomitant]
     Indication: ANXIETY
     Route: 048
  6. COLCRYS [Suspect]
     Indication: GOUT
     Route: 048
     Dates: start: 20110914
  7. CELEBREX [Concomitant]
     Indication: ARTHRITIS
     Route: 048
  8. ASPIRIN [Concomitant]
     Indication: PRODUCT USED FOR UNKNOWN INDICATION
     Route: 048
  9. TYLENOL-500 [Concomitant]
     Indication: ARTHRITIS
     Route: 048

REACTIONS (1)
  - VIITH NERVE PARALYSIS [None]
